FAERS Safety Report 9277247 (Version 3)
Quarter: 2013Q4

REPORT INFORMATION
  Report Type: Spontaneous
  Country: SE (occurrence: SE)
  Receive Date: 20130508
  Receipt Date: 20131002
  Transmission Date: 20140711
  Serious: Yes (Life-Threatening)
  Sender: FDA-Public Use
  Company Number: SE-ROCHE-1221893

PATIENT
  Age: 84 Year
  Sex: Female

DRUGS (2)
  1. ACTILYSE [Suspect]
     Indication: ISCHAEMIC STROKE
     Route: 042
     Dates: start: 20130420, end: 20130420
  2. SAROTEN [Concomitant]
     Indication: SEDATION
     Dosage: FOR THE NIGHT
     Route: 065

REACTIONS (2)
  - Cerebral haemorrhage [Not Recovered/Not Resolved]
  - Headache [Recovered/Resolved]
